FAERS Safety Report 6477993-4 (Version None)
Quarter: 2009Q4

REPORT INFORMATION
  Report Type: 
  Country: None (occurrence: None)
  Receive Date: 20091207
  Receipt Date: 20091130
  Transmission Date: 20100525
  Serious: Yes (Hospitalization)
  Sender: FDA-Public Use
  Company Number: B0609038A

PATIENT
  Sex: Male

DRUGS (2)
  1. WELLBUTRIN [Suspect]
     Indication: DRUG USE FOR UNKNOWN INDICATION
     Route: 065
  2. BETA-BLOCKER(UNSPECIFIED) [Concomitant]
     Indication: HYPERTENSION
     Route: 065

REACTIONS (1)
  - BLOOD PRESSURE FLUCTUATION [None]
